FAERS Safety Report 6614215-5 (Version None)
Quarter: 2010Q1

REPORT INFORMATION
  Report Type: 
  Country: None (occurrence: None)
  Receive Date: 20100304
  Receipt Date: 20100224
  Transmission Date: 20100710
  Serious: Yes (Other)
  Sender: FDA-Public Use
  Company Number: GB-PFIZER INC-2010024945

PATIENT
  Age: 75 Year
  Sex: Male

DRUGS (2)
  1. FLUCONAZOLE [Suspect]
     Indication: CANDIDIASIS
     Dosage: UNK
  2. PANTOPRAZOLE [Concomitant]
     Dosage: UNK

REACTIONS (1)
  - DRUG RESISTANCE [None]
